FAERS Safety Report 25640172 (Version 1)
Quarter: 2025Q3

REPORT INFORMATION
  Report Type: Spontaneous
  Country: EU (occurrence: EU)
  Receive Date: 20250804
  Receipt Date: 20250804
  Transmission Date: 20251020
  Serious: Yes (Other)
  Sender: FERRING
  Company Number: EU-FERRINGPH-2025FE04074

PATIENT

DRUGS (1)
  1. LUTREPULSE [Suspect]
     Active Substance: GONADORELIN ACETATE
     Indication: Assisted reproductive technology
     Route: 058
     Dates: start: 2025

REACTIONS (1)
  - Abortion spontaneous [Unknown]

NARRATIVE: CASE EVENT DATE: 20250101
